FAERS Safety Report 14300377 (Version 1)
Quarter: 2017Q4

REPORT INFORMATION
  Report Type: Spontaneous
  Country: FR (occurrence: FR)
  Receive Date: 20171219
  Receipt Date: 20171219
  Transmission Date: 20180321
  Serious: Yes (Hospitalization, Other)
  Sender: FDA-Public Use
  Company Number: FR-MERCK KGAA-2037374

PATIENT
  Age: 44 Year
  Sex: Female

DRUGS (1)
  1. NOVOTHYROX [Suspect]
     Active Substance: LEVOTHYROXINE SODIUM
     Indication: POST PROCEDURAL HYPOTHYROIDISM

REACTIONS (19)
  - Fatigue [None]
  - Apathy [None]
  - Insomnia [None]
  - Tachycardia [None]
  - Hyperthyroidism [None]
  - Vertigo [None]
  - Sense of oppression [None]
  - Loss of personal independence in daily activities [None]
  - Nausea [None]
  - Weight fluctuation [None]
  - Memory impairment [None]
  - Depressed mood [None]
  - Headache [None]
  - Anxiety [None]
  - Malaise [None]
  - Hypothyroidism [None]
  - Disturbance in attention [None]
  - Pulse pressure increased [None]
  - Gastrointestinal disorder [None]

NARRATIVE: CASE EVENT DATE: 20171009
